FAERS Safety Report 15299009 (Version 3)
Quarter: 2018Q4

REPORT INFORMATION
  Report Type: Spontaneous
  Country: IT (occurrence: IT)
  Receive Date: 20180821
  Receipt Date: 20181004
  Transmission Date: 20190204
  Serious: Yes (Hospitalization)
  Sender: FDA-Public Use
  Company Number: IT-SUN PHARMACEUTICAL INDUSTRIES LTD-2018R1-181843

PATIENT
  Age: 88 Year
  Sex: Female

DRUGS (1)
  1. VALSARTAN. [Suspect]
     Active Substance: VALSARTAN
     Indication: HYPERTENSION
     Dosage: 40 MG, DAILY
     Route: 048
     Dates: end: 20180715

REACTIONS (3)
  - Malaise [Unknown]
  - Hyponatraemia [Unknown]
  - Decreased appetite [Unknown]

NARRATIVE: CASE EVENT DATE: 20180715
